FAERS Safety Report 14680012 (Version 1)
Quarter: 2018Q1

REPORT INFORMATION
  Report Type: Spontaneous
  Country: US (occurrence: US)
  Receive Date: 20180325
  Receipt Date: 20180325
  Transmission Date: 20180509
  Serious: No
  Sender: FDA-Public Use
  Company Number: None

PATIENT
  Age: 32 Year
  Sex: Female
  Weight: 60.75 kg

DRUGS (2)
  1. CETIRIZINE HCL [Suspect]
     Active Substance: CETIRIZINE HYDROCHLORIDE
     Indication: HYPERSENSITIVITY
     Dosage: ?          QUANTITY:1 TABLET(S);?
     Route: 048
  2. ALBUTEROL INHALER [Suspect]
     Active Substance: ALBUTEROL

REACTIONS (5)
  - Formication [None]
  - Urticaria [None]
  - Anxiety [None]
  - Pruritus generalised [None]
  - Dizziness [None]

NARRATIVE: CASE EVENT DATE: 20180325
